FAERS Safety Report 4324090-X (Version None)
Quarter: 2004Q1

REPORT INFORMATION
  Report Type: 
  Country: None (occurrence: None)
  Receive Date: 20040326
  Receipt Date: 20031209
  Transmission Date: 20041129
  Serious: No
  Sender: FDA-Public Use
  Company Number: US-GLAXOSMITHKLINE-A0443515A

PATIENT
  Age: 54 Year
  Sex: Female

DRUGS (8)
  1. ADVAIR DISKUS 100/50 [Suspect]
     Indication: ASTHMA
     Route: 055
  2. VENTOLIN [Concomitant]
     Route: 065
  3. SINGULAIR [Concomitant]
     Route: 065
  4. ALLEGRA [Concomitant]
     Route: 065
  5. NASONEX [Concomitant]
     Route: 065
  6. SYNTHROID [Concomitant]
     Route: 065
  7. LOTREL [Concomitant]
     Route: 065
  8. CENESTIN [Concomitant]
     Route: 065

REACTIONS (2)
  - DRUG INEFFECTIVE [None]
  - ENAMEL ANOMALY [None]
